FAERS Safety Report 8517200-1 (Version None)
Quarter: 2012Q3

REPORT INFORMATION
  Report Type: 
  Country: None (occurrence: None)
  Receive Date: 20120718
  Receipt Date: 20120712
  Transmission Date: 20120928
  Serious: Yes (Hospitalization)
  Sender: FDA-Public Use
  Company Number: NO-ASTRAZENECA-2012SE48235

PATIENT
  Age: 84 Year
  Sex: Female

DRUGS (8)
  1. METOPROLOL SUCCINATE [Concomitant]
  2. MEROPENEM [Suspect]
     Route: 042
  3. BUMETANIDE [Concomitant]
  4. POTASSIUM CHLORIDE [Concomitant]
  5. DUPHALAC [Concomitant]
  6. WARFARIN SODIUM [Interacting]
     Route: 065
  7. CALCIGRAN FORTE [Concomitant]
     Dosage: 1 TABLET DAILY CONTAINING 1000 MG CALCIUM CARBONATE AND 800MG COLECALCIFEROL
  8. FURADANTIN [Interacting]
     Route: 048

REACTIONS (3)
  - POTENTIATING DRUG INTERACTION [None]
  - OVERDOSE [None]
  - GASTROINTESTINAL HAEMORRHAGE [None]
